FAERS Safety Report 5007779-9 (Version None)
Quarter: 2006Q2

REPORT INFORMATION
  Report Type: 
  Country: None (occurrence: None)
  Receive Date: 20060522
  Receipt Date: 20051115
  Transmission Date: 20061013
  Serious: Yes (Other)
  Sender: FDA-Public Use
  Company Number: GB-GLAXOSMITHKLINE-B0400688A

PATIENT
  Sex: Female

DRUGS (2)
  1. SEROXAT [Suspect]
     Indication: DEPRESSION
     Route: 065
     Dates: start: 20021210
  2. DICLOFENAC POTASSIUM [Concomitant]
     Indication: ARTHRALGIA

REACTIONS (2)
  - OVERDOSE [None]
  - SUICIDE ATTEMPT [None]
